FAERS Safety Report 7246263-9 (Version None)
Quarter: 2011Q1

REPORT INFORMATION
  Report Type: 
  Country: None (occurrence: None)
  Receive Date: 20110126
  Receipt Date: 20110117
  Transmission Date: 20110831
  Serious: Yes (Death, Other)
  Sender: FDA-Public Use
  Company Number: IT-ELI_LILLY_AND_COMPANY-IT200708001855

PATIENT
  Sex: Female

DRUGS (4)
  1. ZOFRAN [Concomitant]
     Dosage: UNK, AS NEEDED
  2. HUMAN INSULIN [Suspect]
     Dosage: 5 IU, 3/D
     Route: 064
     Dates: start: 19870701, end: 19871231
  3. ERGOTAMINE [Concomitant]
     Indication: HEADACHE
     Dosage: 3 MG, DAILY (1/D)
     Route: 048
     Dates: start: 20060101
  4. SOLDESAM [Concomitant]
     Dosage: 8 MG, DAILY (1/D)

REACTIONS (2)
  - DRUG EXPOSURE DURING PREGNANCY [None]
  - GLIOBLASTOMA [None]
